FAERS Safety Report 5313807-3 (Version None)
Quarter: 2007Q2

REPORT INFORMATION
  Report Type: 
  Country: None (occurrence: None)
  Receive Date: 20070501
  Receipt Date: 20070416
  Transmission Date: 20071010
  Serious: Yes (Other)
  Sender: FDA-Public Use
  Company Number: US-ROCHE-425389

PATIENT
  Age: 57 Year
  Sex: Female
  Weight: 47.6 kg

DRUGS (5)
  1. PEGASYS [Suspect]
     Indication: HEPATITIS C
     Dosage: ONE INJECTION WEEKLY.
     Route: 058
     Dates: start: 20040308, end: 20041202
  2. COPEGUS [Suspect]
     Indication: HEPATITIS C
     Dosage: 400 MG IN AM AND 400 MG IN PM.
     Route: 048
     Dates: start: 20040308, end: 20041202
  3. ZOLOFT [Concomitant]
     Route: 048
  4. METHOCARBAMOL [Concomitant]
  5. VALIUM [Concomitant]

REACTIONS (2)
  - ATTENTION DEFICIT/HYPERACTIVITY DISORDER [None]
  - NUCLEAR MAGNETIC RESONANCE IMAGING BRAIN ABNORMAL [None]
